FAERS Safety Report 12226824 (Version 2)
Quarter: 2016Q2

REPORT INFORMATION
  Report Type: Spontaneous
  Country: US (occurrence: US)
  Receive Date: 20160331
  Receipt Date: 20160524
  Transmission Date: 20160815
  Serious: Yes (Other)
  Sender: FDA-Public Use
  Company Number: US-BRISTOL-MYERS SQUIBB COMPANY-BMS-2016-023641

PATIENT
  Sex: Male

DRUGS (3)
  1. ABILIFY [Suspect]
     Active Substance: ARIPIPRAZOLE
     Indication: BIPOLAR DISORDER
     Dosage: 20 MG, QD
     Route: 048
     Dates: start: 2002
  2. ABILIFY [Suspect]
     Active Substance: ARIPIPRAZOLE
     Indication: ANXIETY
  3. ABILIFY [Suspect]
     Active Substance: ARIPIPRAZOLE
     Indication: STRESS

REACTIONS (13)
  - Diabetes mellitus [Unknown]
  - Hepatic mass [Unknown]
  - Gambling disorder [Unknown]
  - Tremor [Unknown]
  - Obsessive-compulsive disorder [Unknown]
  - Off label use [Unknown]
  - Libido increased [Unknown]
  - Dependent personality disorder [Unknown]
  - Pancreatic cyst [Unknown]
  - Social fear [Unknown]
  - Psychiatric symptom [Unknown]
  - Bipolar disorder [Unknown]
  - Panic disorder [Unknown]

NARRATIVE: CASE EVENT DATE: 2003
